FAERS Safety Report 7162180-7 (Version None)
Quarter: 2010Q4

REPORT INFORMATION
  Report Type: 
  Country: None (occurrence: None)
  Receive Date: 20101215
  Receipt Date: 20101209
  Transmission Date: 20110411
  Serious: Yes (Death)
  Sender: FDA-Public Use
  Company Number: CO-ROCHE-745982

PATIENT
  Sex: Male

DRUGS (1)
  1. CELLCEPT [Suspect]
     Route: 048
     Dates: start: 20091116, end: 20101122

REACTIONS (2)
  - DISEASE PROGRESSION [None]
  - RENAL FAILURE [None]
